FAERS Safety Report 9457645 (Version 1)
Quarter: 2013Q3

REPORT INFORMATION
  Report Type: Spontaneous
  Country: US (occurrence: None)
  Receive Date: 20130812
  Receipt Date: 20130812
  Transmission Date: 20140515
  Serious: No
  Sender: FDA-Public Use
  Company Number: None

PATIENT
  Age: 10 Year
  Sex: Male

DRUGS (1)
  1. AVI Q [Suspect]
     Indication: FOOD ALLERGY
     Dosage: INJECTION AS NEEDED INTO THE MUSCLE?LOT# ?130567502406  EXP DATE 06/01/2014?EXP DATE?06/01/2014

REACTIONS (1)
  - Product label issue [None]
